FAERS Safety Report 5337635-8 (Version None)
Quarter: 2007Q2

REPORT INFORMATION
  Report Type: 
  Country: None (occurrence: None)
  Receive Date: 20070524
  Receipt Date: 20070514
  Transmission Date: 20071010
  Serious: Yes (Other)
  Sender: FDA-Public Use
  Company Number: FEI2007-0344

PATIENT
  Age: 30 Year
  Sex: Female
  Weight: 109.3169 kg

DRUGS (4)
  1. INTRAUTERINE COPPER CONTRACEPTIVE [Suspect]
     Indication: CONTRACEPTION
     Dosage: NA, NA, INTRA-UTERINE
     Route: 015
     Dates: start: 20060621, end: 20070123
  2. COUMADIN [Concomitant]
  3. HEPARIN [Concomitant]
  4. ASPIRIN [Concomitant]

REACTIONS (5)
  - DISEASE RECURRENCE [None]
  - DRUG EXPOSURE DURING PREGNANCY [None]
  - INTRA-UTERINE CONTRACEPTIVE DEVICE EXPELLED [None]
  - PREGNANCY [None]
  - THROMBOSIS [None]
